FAERS Safety Report 14377040 (Version 1)
Quarter: 2018Q1

REPORT INFORMATION
  Report Type: Spontaneous
  Country: US (occurrence: US)
  Receive Date: 20180111
  Receipt Date: 20180111
  Transmission Date: 20180509
  Serious: No
  Sender: FDA-Public Use
  Company Number: US-DRREDDYS-USA/USA/16/0086024

PATIENT
  Age: 66 Year
  Sex: Female
  Weight: 81.6 kg

DRUGS (1)
  1. HABITROL [Suspect]
     Active Substance: NICOTINE
     Indication: SMOKING CESSATION THERAPY
     Dosage: 3 DAYS AGO
     Route: 061
     Dates: end: 20161228

REACTIONS (2)
  - Fatigue [Recovered/Resolved]
  - Nicotine dependence [Recovering/Resolving]
